FAERS Safety Report 8513032-9 (Version None)
Quarter: 2012Q3

REPORT INFORMATION
  Report Type: 
  Country: None (occurrence: None)
  Receive Date: 20120716
  Receipt Date: 20120710
  Transmission Date: 20120928
  Serious: No
  Sender: FDA-Public Use
  Company Number: US-TEVA-347719USA

PATIENT
  Sex: Male
  Weight: 138.92 kg

DRUGS (1)
  1. NUVIGIL [Suspect]
     Indication: SLEEP APNOEA SYNDROME
     Dosage: 250 MILLIGRAM;
     Route: 048
     Dates: start: 20120501

REACTIONS (2)
  - THERAPEUTIC RESPONSE UNEXPECTED [None]
  - HYPERSEXUALITY [None]
